APPROVED DRUG PRODUCT: TUKYSA
Active Ingredient: TUCATINIB
Strength: 50MG
Dosage Form/Route: TABLET;ORAL
Application: N213411 | Product #001
Applicant: SEAGEN INC
Approved: Apr 17, 2020 | RLD: Yes | RS: No | Type: RX

PATENTS:
Patent 11504370 | Expires: Mar 25, 2033
Patent 11666572 | Expires: Apr 27, 2038
Patent 12048698 | Expires: Apr 27, 2038
Patent 9457093 | Expires: Oct 12, 2032
Patent 9693989 | Expires: May 9, 2027
Patent 11207324 | Expires: Apr 27, 2038
Patent 8648087 | Expires: Apr 12, 2031

EXCLUSIVITY:
Code: I-906 | Date: Jan 19, 2026
Code: ODE-309 | Date: Apr 17, 2027
Code: ODE-422 | Date: Jan 19, 2030